FAERS Safety Report 8281890-1 (Version None)
Quarter: 2012Q2

REPORT INFORMATION
  Report Type: 
  Country: None (occurrence: None)
  Receive Date: 20120413
  Receipt Date: 20120402
  Transmission Date: 20120825
  Serious: Yes (Other)
  Sender: FDA-Public Use
  Company Number: CA-JNJFOC-20120401096

PATIENT
  Sex: Female
  Weight: 75 kg

DRUGS (2)
  1. REMICADE [Suspect]
     Indication: PSORIATIC ARTHROPATHY
     Route: 042
     Dates: start: 20100101
  2. REMICADE [Suspect]
     Dosage: PATIENT HAD ARRIVED FOR 12TH INFUSION
     Route: 042
     Dates: start: 20120221

REACTIONS (6)
  - OROPHARYNGEAL PAIN [None]
  - ADRENAL DISORDER [None]
  - RASH GENERALISED [None]
  - PRODUCTIVE COUGH [None]
  - FATIGUE [None]
  - DIZZINESS [None]
